FAERS Safety Report 4767167-7 (Version None)
Quarter: 2005Q3

REPORT INFORMATION
  Report Type: 
  Country: None (occurrence: None)
  Receive Date: 20050909
  Receipt Date: 20050909
  Transmission Date: 20060218
  Serious: No
  Sender: FDA-Public Use
  Company Number: None

PATIENT
  Age: 29 Year
  Sex: Female
  Weight: 55.5203 kg

DRUGS (2)
  1. KETROLAC 60MG ABBOTT LABS [Suspect]
     Indication: HYSTERECTOMY
     Dosage: 30 MG 3 IM
     Route: 030
     Dates: start: 20041229, end: 20041230
  2. KETROLAC 60MG ABBOTT LABS [Suspect]
     Indication: POSTOPERATIVE ANALGESIA
     Dosage: 30 MG 3 IM
     Route: 030
     Dates: start: 20041229, end: 20041230

REACTIONS (2)
  - FAT NECROSIS [None]
  - SKIN DISORDER [None]
